FAERS Safety Report 7430799-1 (Version None)
Quarter: 2011Q2

REPORT INFORMATION
  Report Type: 
  Country: None (occurrence: None)
  Receive Date: 20110421
  Receipt Date: 20110418
  Transmission Date: 20111010
  Serious: Yes (Death, Other)
  Sender: FDA-Public Use
  Company Number: US-AMGEN-USASP2011016433

PATIENT
  Age: 85 Year
  Sex: Male
  Weight: 61.224 kg

DRUGS (2)
  1. CORTICOSTEROIDS [Concomitant]
  2. NPLATE [Suspect]
     Indication: IDIOPATHIC THROMBOCYTOPENIC PURPURA
     Dosage: 308 A?G, UNK
     Dates: start: 20090326, end: 20110311

REACTIONS (3)
  - DEATH [None]
  - PLATELET COUNT DECREASED [None]
  - PNEUMONIA [None]
